FAERS Safety Report 9789877 (Version 1)
Quarter: 2013Q4

REPORT INFORMATION
  Report Type: Spontaneous
  Country: US (occurrence: US)
  Receive Date: 20131231
  Receipt Date: 20131231
  Transmission Date: 20140711
  Serious: Yes (Other)
  Sender: FDA-Public Use
  Company Number: US-DRREDDYS-USA/USA/13/0036723

PATIENT
  Age: 29 Year
  Sex: Male

DRUGS (1)
  1. LANSOPRAZOLE DR CAPSULES 15MG OTC [Suspect]
     Indication: DYSPEPSIA
     Dosage: 1 TO 2 PILLS DAILY
     Route: 048

REACTIONS (1)
  - Bronchitis [Not Recovered/Not Resolved]
